FAERS Safety Report 7314493-3 (Version None)
Quarter: 2011Q1

REPORT INFORMATION
  Report Type: 
  Country: None (occurrence: None)
  Receive Date: 20110225
  Receipt Date: 20100930
  Transmission Date: 20110831
  Serious: No
  Sender: FDA-Public Use
  Company Number: US-MYLANLABS-2010S1016777

PATIENT
  Sex: Male
  Weight: 97 kg

DRUGS (3)
  1. PRAVASTATIN [Concomitant]
  2. LISINOPRIL [Concomitant]
  3. AMNESTEEM [Suspect]
     Indication: ACNE CYSTIC
     Dates: start: 20100501, end: 20100909

REACTIONS (4)
  - BLOOD TRIGLYCERIDES INCREASED [None]
  - LIVER FUNCTION TEST ABNORMAL [None]
  - LIPIDS INCREASED [None]
  - BLOOD CHOLESTEROL INCREASED [None]
